FAERS Safety Report 8614553 (Version 2)
Quarter: 2012Q4

REPORT INFORMATION
  Report Type: 
  Country: AU (occurrence: AU)
  Receive Date: 20120614
  Receipt Date: 20121106
  Transmission Date: 20130627
  Serious: Yes (Disabling)
  Sender: FDA-Public Use
  Company Number: AU-ROCHE-1056822

PATIENT
  Sex: Female
  Weight: 54 kg

DRUGS (5)
  1. VALIUM [Suspect]
     Indication: MUSCLE RELAXANT THERAPY
     Dosage: 1-2 as required
     Route: 048
  2. VALIUM [Suspect]
     Indication: PANIC ATTACK
  3. OXYCONTIN [Concomitant]
     Indication: PAIN
  4. SANDRENA [Concomitant]
     Indication: HORMONE REPLACEMENT THERAPY
  5. PANADEINE FORTE [Concomitant]
     Indication: PAIN

REACTIONS (2)
  - Drug ineffective [Unknown]
  - Sensory disturbance [Unknown]
